FAERS Safety Report 6079489-0 (Version None)
Quarter: 2009Q1

REPORT INFORMATION
  Report Type: 
  Country: None (occurrence: None)
  Receive Date: 20090216
  Receipt Date: 20090209
  Transmission Date: 20090719
  Serious: Yes (Hospitalization)
  Sender: FDA-Public Use
  Company Number: BR-ABBOTT-09P-020-0502413-00

PATIENT
  Sex: Female

DRUGS (9)
  1. HUMIRA [Suspect]
     Indication: RHEUMATOID ARTHRITIS
     Route: 058
     Dates: start: 20080412
  2. HUMIRA [Suspect]
  3. ARAVA [Concomitant]
     Indication: DRUG USE FOR UNKNOWN INDICATION
  4. HIDANTAL [Concomitant]
     Indication: DRUG USE FOR UNKNOWN INDICATION
  5. ACETYLSALICYLIC ACID (AAS INFLANTIL) [Concomitant]
     Indication: DRUG USE FOR UNKNOWN INDICATION
  6. OMEPRAZOLE [Concomitant]
     Indication: DRUG USE FOR UNKNOWN INDICATION
  7. LOSARTAN [Concomitant]
     Indication: DRUG USE FOR UNKNOWN INDICATION
  8. PREDSIM [Concomitant]
     Indication: DRUG USE FOR UNKNOWN INDICATION
  9. FOLIC ACID, IRON (IBERIN FOLIC) [Concomitant]
     Indication: DRUG USE FOR UNKNOWN INDICATION

REACTIONS (4)
  - BLOOD PRESSURE INCREASED [None]
  - GASTRITIS [None]
  - MOBILITY DECREASED [None]
  - TRANSIENT ISCHAEMIC ATTACK [None]
